FAERS Safety Report 15595704 (Version 2)
Quarter: 2019Q1

REPORT INFORMATION
  Report Type: Spontaneous
  Country: US (occurrence: US)
  Receive Date: 20181107
  Receipt Date: 20190114
  Transmission Date: 20190417
  Serious: Yes (Other)
  Sender: FDA-Public Use
  Company Number: US-BRISTOL-MYERS SQUIBB COMPANY-BMS-2018-102030

PATIENT
  Sex: Male
  Weight: 79.36 kg

DRUGS (1)
  1. OPDIVO [Suspect]
     Active Substance: NIVOLUMAB
     Indication: SQUAMOUS CELL CARCINOMA
     Dosage: 480 MG, QMO
     Route: 042
     Dates: start: 20181004

REACTIONS (6)
  - Delusion [Unknown]
  - Mental disorder [Unknown]
  - Headache [Unknown]
  - Malignant neoplasm progression [Unknown]
  - Fatigue [Unknown]
  - Pain [Unknown]
